FAERS Safety Report 15330775 (Version 2)
Quarter: 2018Q4

REPORT INFORMATION
  Report Type: Spontaneous
  Country: DE (occurrence: DE)
  Receive Date: 20180829
  Receipt Date: 20181018
  Transmission Date: 20190204
  Serious: Yes (Life-Threatening, Other)
  Sender: FDA-Public Use
  Company Number: DE-BRISTOL-MYERS SQUIBB COMPANY-BMS-2018-079791

PATIENT
  Age: 62 Year
  Sex: Male
  Weight: 80 kg

DRUGS (3)
  1. ELIQUIS [Suspect]
     Active Substance: APIXABAN
     Indication: PULMONARY EMBOLISM
     Dosage: 5 MG, BID
     Route: 048
     Dates: start: 201805, end: 20180731
  2. IPRATROPIUM                        /00391402/ [Concomitant]
     Indication: CHRONIC OBSTRUCTIVE PULMONARY DISEASE
     Dosage: 0.02 MG, DAILY
     Route: 065
  3. FENOTEROL [Concomitant]
     Active Substance: FENOTEROL
     Indication: CHRONIC OBSTRUCTIVE PULMONARY DISEASE
     Dosage: 0.05 MG, PER DAY
     Route: 065

REACTIONS (5)
  - Venous thrombosis limb [Recovering/Resolving]
  - Endocarditis noninfective [Recovering/Resolving]
  - Intracardiac thrombus [Recovering/Resolving]
  - Pulmonary embolism [Recovering/Resolving]
  - Ischaemic stroke [Recovering/Resolving]

NARRATIVE: CASE EVENT DATE: 201805
